FAERS Safety Report 6827661-1 (Version None)
Quarter: 2010Q3

REPORT INFORMATION
  Report Type: 
  Country: None (occurrence: None)
  Receive Date: 20100709
  Receipt Date: 20070124
  Transmission Date: 20110219
  Serious: No
  Sender: FDA-Public Use
  Company Number: US-PFIZER INC-2007007338

PATIENT
  Sex: Male
  Weight: 88.45 kg

DRUGS (10)
  1. CHANTIX [Suspect]
     Indication: SMOKING CESSATION THERAPY
     Route: 048
     Dates: start: 20061215
  2. VERAPAMIL [Concomitant]
  3. METFORMIN HCL [Concomitant]
     Indication: TYPE 2 DIABETES MELLITUS
  4. NEXIUM [Concomitant]
  5. ALLEGRA D 24 HOUR [Concomitant]
  6. SYNTHROID [Concomitant]
  7. ZYPREXA [Concomitant]
  8. ALPRAZOLAM [Concomitant]
  9. METHADONE [Concomitant]
  10. ALBUTEROL [Concomitant]
     Route: 055

REACTIONS (1)
  - BLOOD GLUCOSE INCREASED [None]
